FAERS Safety Report 10741429 (Version 1)
Quarter: 2015Q1

REPORT INFORMATION
  Report Type: Spontaneous
  Country: US (occurrence: None)
  Receive Date: 20150123
  Receipt Date: 20150123
  Transmission Date: 20150721
  Serious: Yes (Hospitalization)
  Sender: FDA-Public Use
  Company Number: None

PATIENT
  Age: 31 Year
  Sex: Female
  Weight: 93.6 kg

DRUGS (1)
  1. TAXOL [Suspect]
     Active Substance: PACLITAXEL
     Dates: end: 20141215

REACTIONS (7)
  - Nausea [None]
  - Enterococcal infection [None]
  - Pyrexia [None]
  - Vomiting [None]
  - Kidney infection [None]
  - Urinary tract infection [None]
  - Back pain [None]

NARRATIVE: CASE EVENT DATE: 20150113
